FAERS Safety Report 10257153 (Version 1)
Quarter: 2014Q2

REPORT INFORMATION
  Report Type: Spontaneous
  Country: FR (occurrence: FR)
  Receive Date: 20140625
  Receipt Date: 20140625
  Transmission Date: 20141212
  Serious: Yes (Hospitalization)
  Sender: FDA-Public Use
  Company Number: FR-009507513-1406FRA009377

PATIENT
  Age: 35 Year
  Sex: Male

DRUGS (7)
  1. NORSET [Suspect]
     Indication: DEPRESSION
     Dosage: 15 MG, BID
     Route: 048
     Dates: start: 20140502, end: 20140521
  2. SIFROL [Suspect]
     Indication: RESTLESS LEGS SYNDROME
     Dosage: 0.18 MG, BID
     Route: 048
     Dates: start: 20140502, end: 20140521
  3. BACLOFEN [Suspect]
     Indication: ALCOHOL WITHDRAWAL SYNDROME
     Dosage: 10 MG, UNK
     Route: 048
     Dates: start: 20140502, end: 20140521
  4. NICOBION [Concomitant]
  5. THIAMINE [Concomitant]
  6. PYRIDOXINE [Concomitant]
  7. SEROPLEX [Concomitant]

REACTIONS (4)
  - Delirium [Recovered/Resolved]
  - Grandiosity [Recovered/Resolved]
  - Mood altered [Recovered/Resolved]
  - Logorrhoea [Recovered/Resolved]
